FAERS Safety Report 7379178-6 (Version None)
Quarter: 2011Q1

REPORT INFORMATION
  Report Type: 
  Country: None (occurrence: None)
  Receive Date: 20110328
  Receipt Date: 20110324
  Transmission Date: 20110831
  Serious: Yes (Death)
  Sender: FDA-Public Use
  Company Number: GXKR2011DE01288

PATIENT
  Sex: Female

DRUGS (1)
  1. SULFAMETHOXAZOLE AND TRIMETHOPRIM [Suspect]
     Indication: URINARY TRACT INFECTION
     Dosage: 960 MG, QD
     Dates: start: 20101220, end: 20101226

REACTIONS (2)
  - HEPATIC FAILURE [None]
  - RENAL FAILURE [None]
